FAERS Safety Report 8060331-3 (Version None)
Quarter: 2012Q1

REPORT INFORMATION
  Report Type: 
  Country: None (occurrence: None)
  Receive Date: 20120120
  Receipt Date: 20120116
  Transmission Date: 20120608
  Serious: No
  Sender: FDA-Public Use
  Company Number: US-PFIZER INC-2012013199

PATIENT
  Sex: Male

DRUGS (4)
  1. ALAVERT [Suspect]
     Indication: EYE PRURITUS
     Dosage: UNK
  2. ALAVERT [Suspect]
     Indication: NASAL DISCOMFORT
  3. ALAVERT [Suspect]
     Indication: HYPERSENSITIVITY
  4. ALAVERT [Suspect]
     Indication: SNEEZING

REACTIONS (1)
  - DRUG INEFFECTIVE [None]
